FAERS Safety Report 5799874-1 (Version None)
Quarter: 2008Q3

REPORT INFORMATION
  Report Type: 
  Country: None (occurrence: None)
  Receive Date: 20080703
  Receipt Date: 20080624
  Transmission Date: 20090109
  Serious: Yes (Other)
  Sender: FDA-Public Use
  Company Number: US-ABBOTT-08P-163-0459321-00

PATIENT
  Sex: Female

DRUGS (9)
  1. HUMIRA [Suspect]
     Indication: RHEUMATOID ARTHRITIS
     Route: 058
     Dates: start: 20020101
  2. HUMIRA [Suspect]
     Route: 058
  3. LEVOFLOXACIN [Suspect]
     Indication: CYSTITIS
     Dates: start: 20070101, end: 20070101
  4. FUROSEMIDE [Concomitant]
     Indication: SWELLING
  5. METHOTREXATE [Concomitant]
     Indication: DRUG USE FOR UNKNOWN INDICATION
  6. LEVOTHYROXINE SODIUM [Concomitant]
     Indication: DRUG USE FOR UNKNOWN INDICATION
  7. COSOPT [Concomitant]
     Indication: DRUG USE FOR UNKNOWN INDICATION
  8. ALENDRONATE SODIUM [Concomitant]
     Indication: DRUG USE FOR UNKNOWN INDICATION
  9. CARDIAC MEDICATIONS-NOT FURTHER NAMED [Concomitant]
     Indication: DRUG USE FOR UNKNOWN INDICATION

REACTIONS (6)
  - ARTERIAL OCCLUSIVE DISEASE [None]
  - CYSTITIS [None]
  - DYSPNOEA [None]
  - JOINT SWELLING [None]
  - URTICARIA [None]
  - VENOUS OCCLUSION [None]
